FAERS Safety Report 9261856 (Version 1)
Quarter: 2013Q2

REPORT INFORMATION
  Report Type: Spontaneous
  Country: GB (occurrence: GB)
  Receive Date: 20130429
  Receipt Date: 20130429
  Transmission Date: 20140414
  Serious: Yes (Hospitalization, Other)
  Sender: FDA-Public Use
  Company Number: GB-PFIZER INC-2013099018

PATIENT
  Age: 61 Year
  Sex: Female

DRUGS (5)
  1. OMEPRAZOLE [Suspect]
     Dosage: 30 MG, 1X/DAY
  2. IBUPROFEN [Suspect]
     Indication: MUSCULOSKELETAL PAIN
     Dosage: UNK
  3. LANSOPRAZOLE [Suspect]
     Indication: GASTRITIS
     Dosage: 80 MG, 1X/DAY
     Dates: start: 20130213, end: 20130306
  4. LANSOPRAZOLE [Suspect]
     Indication: DUODENITIS
  5. LANSOPRAZOLE [Suspect]
     Indication: DYSPEPSIA

REACTIONS (7)
  - Haematemesis [Recovered/Resolved]
  - Gastritis [Unknown]
  - Duodenitis [Unknown]
  - Abdominal pain lower [Unknown]
  - Melaena [Recovered/Resolved]
  - Fatigue [Unknown]
  - Rash [Unknown]
